FAERS Safety Report 6345242-3 (Version None)
Quarter: 2009Q3

REPORT INFORMATION
  Report Type: 
  Country: None (occurrence: None)
  Receive Date: 20090909
  Receipt Date: 20090827
  Transmission Date: 20100115
  Serious: Yes (Hospitalization, Other)
  Sender: FDA-Public Use
  Company Number: PHHY2009MX35335

PATIENT
  Sex: Female

DRUGS (1)
  1. DIOVAN [Suspect]
     Indication: HYPERTENSION
     Dosage: 40 MG,
     Route: 048
     Dates: start: 20030101, end: 20090726

REACTIONS (10)
  - ABDOMINAL PAIN [None]
  - GENITAL DISORDER FEMALE [None]
  - HYPOTENSION [None]
  - HYSTERECTOMY [None]
  - OOPHORECTOMY [None]
  - PANCREATIC DISORDER [None]
  - PANCREATIC NEOPLASM [None]
  - PANCREATIC OPERATION [None]
  - POSTOPERATIVE WOUND INFECTION [None]
  - SURGERY [None]
